FAERS Safety Report 9695852 (Version 1)
Quarter: 2013Q4

REPORT INFORMATION
  Report Type: Spontaneous
  Country: US (occurrence: None)
  Receive Date: 20131115
  Receipt Date: 20131115
  Transmission Date: 20140711
  Serious: Yes (Other)
  Sender: FDA-Public Use
  Company Number: 2013P1020319

PATIENT
  Age: 56 Year
  Sex: Female
  Weight: 72.58 kg

DRUGS (13)
  1. TROKENDI XR [Suspect]
     Indication: EPILEPSY
     Route: 048
     Dates: start: 201310, end: 20131016
  2. TROKENDI XR [Suspect]
     Indication: ANTICONVULSANT DRUG LEVEL DECREASED
     Route: 048
     Dates: start: 201310, end: 20131016
  3. LAMICTAL [Concomitant]
  4. KEPPRA [Concomitant]
  5. DILANTIN [Concomitant]
  6. LYRICA [Concomitant]
  7. PRILOSEC [Concomitant]
  8. CRESTOR [Concomitant]
  9. MAGNESIUM [Concomitant]
  10. METFORMIN [Concomitant]
  11. ATIVAN [Concomitant]
  12. MESCALINE [Concomitant]
  13. PROMETHAZINE [Concomitant]

REACTIONS (11)
  - Off label use [None]
  - Headache [None]
  - Fatigue [None]
  - Feeling abnormal [None]
  - Pruritus generalised [None]
  - Formication [None]
  - Paraesthesia [None]
  - Mood swings [None]
  - Irritability [None]
  - Urinary tract obstruction [None]
  - Convulsion [None]
